FAERS Safety Report 23943959 (Version 1)
Quarter: 2024Q2

REPORT INFORMATION
  Report Type: Spontaneous
  Country: DZ (occurrence: DZ)
  Receive Date: 20240606
  Receipt Date: 20240606
  Transmission Date: 20240716
  Serious: Yes (Life-Threatening, Hospitalization, Other)
  Sender: FDA-Public Use
  Company Number: DZ-BRISTOL-MYERS SQUIBB COMPANY-2024-090038

PATIENT
  Age: 54 Year
  Sex: Male

DRUGS (1)
  1. OPDIVO [Suspect]
     Active Substance: NIVOLUMAB
     Indication: Squamous cell carcinoma of lung
     Dosage: TWICE PER MONTH
     Route: 042
     Dates: start: 20231227, end: 20240325

REACTIONS (3)
  - Tachycardia [Recovered/Resolved]
  - Thyroiditis subacute [Recovered/Resolved]
  - Adrenal insufficiency [Recovered/Resolved]
